FAERS Safety Report 8492928-0 (Version None)
Quarter: 2012Q3

REPORT INFORMATION
  Report Type: 
  Country: None (occurrence: None)
  Receive Date: 20120706
  Receipt Date: 20120620
  Transmission Date: 20120928
  Serious: Yes (Life-Threatening)
  Sender: FDA-Public Use
  Company Number: CA-GLAXOSMITHKLINE-A0981751A

PATIENT
  Sex: Female
  Weight: 102.3 kg

DRUGS (7)
  1. PULMICORT [Suspect]
     Indication: PRODUCT USED FOR UNKNOWN INDICATION
     Route: 065
  2. LORATADINE [Concomitant]
     Indication: MULTIPLE ALLERGIES
     Dosage: 10MG PER DAY
     Route: 065
  3. ADVAIR DISKUS 100/50 [Suspect]
     Indication: ASTHMA
     Dosage: 1PUFF TWICE PER DAY
     Route: 055
     Dates: start: 20100916, end: 20110913
  4. BRICANYL [Concomitant]
     Indication: ASTHMA
     Route: 065
  5. FLUTICASONE PROPIONATE [Concomitant]
     Dosage: 2PUFF TWICE PER DAY
     Route: 045
  6. VITAMIN B-12 [Concomitant]
     Indication: VITAMIN B12 DEFICIENCY
     Dosage: 1200MG PER DAY
  7. SINGULAIR [Concomitant]
     Indication: MULTIPLE ALLERGIES
     Route: 065

REACTIONS (6)
  - HYPERSENSITIVITY [None]
  - RASH [None]
  - SWOLLEN TONGUE [None]
  - HYPOAESTHESIA ORAL [None]
  - PRURITUS [None]
  - URTICARIA [None]
